FAERS Safety Report 5516574-3 (Version None)
Quarter: 2007Q4

REPORT INFORMATION
  Report Type: 
  Country: None (occurrence: None)
  Receive Date: 20071114
  Receipt Date: 20071031
  Transmission Date: 20080405
  Serious: Yes (Hospitalization)
  Sender: FDA-Public Use
  Company Number: PHHO2007JP18275

PATIENT
  Age: 86 Year
  Sex: Female
  Weight: 60 kg

DRUGS (4)
  1. DIOVAN [Suspect]
     Indication: HYPERTENSION
     Dosage: 80 MG, UNK
     Route: 048
     Dates: start: 20061119
  2. NORVASC [Concomitant]
  3. TRICHLORMETHIAZIDE [Concomitant]
  4. ATELEC [Concomitant]

REACTIONS (2)
  - CHEST PAIN [None]
  - PNEUMONIA [None]
